FAERS Safety Report 11211197 (Version 1)
Quarter: 2015Q2

REPORT INFORMATION
  Report Type: Spontaneous
  Country: US (occurrence: None)
  Receive Date: 20150619
  Receipt Date: 20150619
  Transmission Date: 20150821
  Serious: Yes (Hospitalization)
  Sender: FDA-Public Use
  Company Number: None

PATIENT
  Age: 55 Year
  Sex: Male

DRUGS (22)
  1. ALPRAZOLAM. [Concomitant]
     Active Substance: ALPRAZOLAM
  2. DALAUDID [Concomitant]
  3. NOVOLOG [Suspect]
     Active Substance: INSULIN ASPART
     Indication: DIABETES MELLITUS
     Dosage: SSI 4 X DAY ACHS
  4. ASA [Concomitant]
     Active Substance: ASPIRIN
  5. DILAUDID [Concomitant]
     Active Substance: HYDROMORPHONE HYDROCHLORIDE
  6. OXYCODONE [Concomitant]
     Active Substance: OXYCODONE
  7. FENTANYL. [Concomitant]
     Active Substance: FENTANYL
  8. LANTUS [Suspect]
     Active Substance: INSULIN GLARGINE
     Indication: DIABETES MELLITUS
     Dosage: CHRONIC 25 UNITS QAM SQ?20 UNITS QPM SQ
     Route: 058
  9. CELEXA [Concomitant]
     Active Substance: CITALOPRAM HYDROBROMIDE
  10. COZAAR [Concomitant]
     Active Substance: LOSARTAN POTASSIUM
  11. TYLENOL [Concomitant]
     Active Substance: ACETAMINOPHEN
  12. MIRALAX [Concomitant]
     Active Substance: POLYETHYLENE GLYCOL 3350
  13. NEURONTIN [Concomitant]
     Active Substance: GABAPENTIN
  14. PERIDEX [Concomitant]
     Active Substance: CHLORHEXIDINE GLUCONATE
  15. THERAGRAN [Concomitant]
     Active Substance: VITAMINS
  16. SPIRIVA [Concomitant]
     Active Substance: TIOTROPIUM BROMIDE MONOHYDRATE
  17. REMERON [Concomitant]
     Active Substance: MIRTAZAPINE
  18. OXYCONTIN [Concomitant]
     Active Substance: OXYCODONE HYDROCHLORIDE
  19. ASCORBIC ACID. [Concomitant]
     Active Substance: ASCORBIC ACID
  20. COLACE [Concomitant]
     Active Substance: DOCUSATE SODIUM
  21. NORVAIR [Concomitant]
  22. PHENERGAN [Concomitant]
     Active Substance: PROMETHAZINE HYDROCHLORIDE

REACTIONS (2)
  - Hypoglycaemia [None]
  - Disease recurrence [None]

NARRATIVE: CASE EVENT DATE: 20150326
